FAERS Safety Report 7540398-9 (Version None)
Quarter: 2011Q2

REPORT INFORMATION
  Report Type: 
  Country: None (occurrence: None)
  Receive Date: 20110603
  Receipt Date: 20110523
  Transmission Date: 20111010
  Serious: Yes (Other)
  Sender: FDA-Public Use
  Company Number: DSU-2011-03775

PATIENT
  Age: 49 Year
  Sex: Female
  Weight: 58.514 kg

DRUGS (8)
  1. WELCHOL [Suspect]
     Indication: BLOOD CHOLESTEROL
     Dosage: PER ORAL
     Route: 048
  2. NEURONTIN [Concomitant]
  3. PROTONIX [Concomitant]
  4. ZOLOFT [Concomitant]
  5. NIASPAN EX (NICOTINIC ACID) (NICOTINIC ACID) [Concomitant]
  6. VITAMINS (ERGOCALCIFEROL, ASCORBIC ACID, THIAMINE HYDROCHLORIDE, RETIN [Concomitant]
  7. ADVIL [Suspect]
     Indication: PRODUCT USED FOR UNKNOWN INDICATION
     Dosage: PER ORAL
     Route: 048
  8. ALLEGRA-D (PSEUDOEPHEDRINE HYDROCHLORIDE, FEXOFENADINE HYDROCHLORIDE) [Concomitant]

REACTIONS (10)
  - NERVE INJURY [None]
  - BLOOD COUNT ABNORMAL [None]
  - ABDOMINAL DISCOMFORT [None]
  - BLOOD CHOLESTEROL INCREASED [None]
  - THROAT CANCER [None]
  - ARTERIAL OCCLUSIVE DISEASE [None]
  - GASTRIC DISORDER [None]
  - THROAT IRRITATION [None]
  - LIVER DISORDER [None]
  - DYSPEPSIA [None]
